FAERS Safety Report 7942612-4 (Version None)
Quarter: 2011Q4

REPORT INFORMATION
  Report Type: 
  Country: None (occurrence: None)
  Receive Date: 20111128
  Receipt Date: 20111117
  Transmission Date: 20120403
  Serious: Yes (Death, Hospitalization)
  Sender: FDA-Public Use
  Company Number: IL-CELGENEUS-082-20785-11111120

PATIENT
  Sex: Female

DRUGS (11)
  1. CYTOXAN [Concomitant]
     Indication: EPENDYMOMA
     Route: 065
     Dates: start: 20100601, end: 20110911
  2. DANTOIN [Concomitant]
     Route: 065
  3. THALIDOMIDE [Suspect]
     Indication: EPENDYMOMA
     Dosage: 8 TABLET
     Route: 048
     Dates: start: 20100601, end: 20110911
  4. ETOPOSIDE [Concomitant]
     Indication: EPENDYMOMA
     Route: 048
     Dates: start: 20100601, end: 20110911
  5. PRILOSEC [Concomitant]
     Route: 065
  6. RESPRIM [Concomitant]
     Route: 065
  7. CELECOXIB [Concomitant]
     Indication: EPENDYMOMA
     Route: 065
     Dates: start: 20100601, end: 20110911
  8. URSOLIT [Concomitant]
     Route: 065
  9. OMEPRAZOLE [Concomitant]
     Route: 065
  10. ELTROXINE [Concomitant]
     Route: 065
  11. ZOFRAN [Concomitant]
     Route: 065

REACTIONS (2)
  - EPENDYMOMA [None]
  - ACUTE LYMPHOCYTIC LEUKAEMIA [None]
